FAERS Safety Report 6522260-3 (Version None)
Quarter: 2009Q4

REPORT INFORMATION
  Report Type: 
  Country: None (occurrence: None)
  Receive Date: 20091230
  Receipt Date: 20091224
  Transmission Date: 20100525
  Serious: Yes (Other)
  Sender: FDA-Public Use
  Company Number: GXKR2009AT13841

PATIENT
  Age: 63 Year
  Sex: Male
  Weight: 105 kg

DRUGS (9)
  1. CISPLATIN [Interacting]
     Indication: URETHRAL CANCER
     Route: 065
  2. LISINOPRIL+HYDROCHLOROTHIAZIDE (NGX) [Suspect]
     Indication: HYPERTENSION
     Dosage: 1 DF, QD (1-0-0)
     Route: 048
  3. PARACETAMOL (NGX) [Interacting]
     Dosage: 500 MG, TID (1-1-1)
     Route: 048
  4. METFORMIN (NGX) [Interacting]
     Indication: TYPE 2 DIABETES MELLITUS
     Dosage: 850 MG,
     Route: 048
  5. GEMCITABINE [Concomitant]
     Indication: URETHRAL CANCER
     Route: 065
  6. PIPERACILLIN W/TAZOBACTAM [Concomitant]
     Indication: URINARY TRACT INFECTION
     Route: 042
  7. LINEZOLID [Concomitant]
     Indication: URINARY TRACT INFECTION
     Route: 065
  8. CARBOPLATIN [Concomitant]
     Indication: URETHRAL CANCER
     Route: 065
  9. ESOMEPRAZOLE SODIUM (NEXIUM) [Concomitant]
     Dosage: 40 MG, BID
     Route: 048

REACTIONS (4)
  - BLOOD LACTATE DEHYDROGENASE INCREASED [None]
  - DRUG INTERACTION [None]
  - GAMMA-GLUTAMYLTRANSFERASE INCREASED [None]
  - RENAL IMPAIRMENT [None]
